FAERS Safety Report 10466897 (Version 1)
Quarter: 2014Q3

REPORT INFORMATION
  Report Type: Spontaneous
  Country: US (occurrence: US)
  Receive Date: 20140922
  Receipt Date: 20140922
  Transmission Date: 20150326
  Serious: No
  Sender: FDA-Public Use
  Company Number: US-PFIZER INC-2014259085

PATIENT
  Sex: Female

DRUGS (3)
  1. ZOMIG [Suspect]
     Active Substance: ZOLMITRIPTAN
     Dosage: UNK
  2. CECLOR [Suspect]
     Active Substance: CEFACLOR
     Dosage: UNK
  3. FLAGYL [Suspect]
     Active Substance: METRONIDAZOLE\METRONIDAZOLE HYDROCHLORIDE
     Dosage: UNK

REACTIONS (1)
  - Drug hypersensitivity [Unknown]
